FAERS Safety Report 24292640 (Version 1)
Quarter: 2024Q3

REPORT INFORMATION
  Report Type: Spontaneous
  Country: CN (occurrence: CN)
  Receive Date: 20240906
  Receipt Date: 20240906
  Transmission Date: 20241017
  Serious: Yes (Hospitalization)
  Sender: PFIZER
  Company Number: CN-PFIZER INC-PV202400116825

PATIENT
  Age: 64 Year
  Sex: Male

DRUGS (1)
  1. MEROPENEM [Suspect]
     Active Substance: MEROPENEM
     Indication: Pneumonitis
     Dosage: 1 G, 3X/DAY
     Route: 042
     Dates: start: 20240717, end: 20240717

REACTIONS (6)
  - Pyrexia [Recovering/Resolving]
  - Hypersensitivity [Recovering/Resolving]
  - Body temperature increased [Unknown]
  - Pain [Unknown]
  - Palpitations [Unknown]
  - Irritability [Unknown]

NARRATIVE: CASE EVENT DATE: 20240717
